FAERS Safety Report 5831589-3 (Version None)
Quarter: 2008Q3

REPORT INFORMATION
  Report Type: 
  Country: None (occurrence: None)
  Receive Date: 20080730
  Receipt Date: 20080716
  Transmission Date: 20090109
  Serious: Yes (Death)
  Sender: FDA-Public Use
  Company Number: 2008AL004920

PATIENT
  Age: 45 Year
  Sex: Female
  Weight: 54.4316 kg

DRUGS (5)
  1. DIGOXIN [Suspect]
     Indication: ARRHYTHMIA
     Dosage: 0.25 MG DAILY PO; MANY YEARS
     Route: 048
  2. DIGOXIN [Suspect]
     Indication: CARDIAC DISORDER
  3. DILANTIN [Concomitant]
  4. ALLOPURINOL [Concomitant]
  5. PENICILLIN [Concomitant]

REACTIONS (13)
  - ASTHENIA [None]
  - BLOOD DISORDER [None]
  - BLOOD PRESSURE INCREASED [None]
  - DIZZINESS POSTURAL [None]
  - DYSPNOEA [None]
  - ERYTHEMA [None]
  - FAECES DISCOLOURED [None]
  - HALLUCINATION [None]
  - HEART RATE DECREASED [None]
  - HYPOPHAGIA [None]
  - NAUSEA [None]
  - OXYGEN SATURATION DECREASED [None]
  - URINE OUTPUT DECREASED [None]
